FAERS Safety Report 4685673-0 (Version None)
Quarter: 2005Q2

REPORT INFORMATION
  Report Type: 
  Country: None (occurrence: None)
  Receive Date: 20050608
  Receipt Date: 20050524
  Transmission Date: 20051028
  Serious: Yes (Death, Congenital Anomaly)
  Sender: FDA-Public Use
  Company Number: 2005-04-1457

PATIENT
  Age: 78 Year
  Sex: Male

DRUGS (11)
  1. ALBUTEROL SULFATE HFA [Suspect]
     Dosage: ORAL AER INH
     Route: 055
  2. TIOTROPIUM BROMIDE [Suspect]
     Dates: end: 20040201
  3. ACETAMINOPHEN W/ CODEINE [Suspect]
  4. SIMVASTATIN [Suspect]
  5. FUROSEMIDE [Suspect]
  6. ASPIRIN [Suspect]
  7. NICORANDIL [Suspect]
  8. RABEPRAZOLE SODIUM [Suspect]
  9. SERETIDE (SALMETEROL XINAFOATE/FLUTICASONE PROPIONAT [Suspect]
  10. ISOSORBIDE MONONITRATE [Suspect]
  11. BISOPROLOL FUMARATE [Suspect]

REACTIONS (1)
  - LEFT VENTRICULAR FAILURE [None]
